FAERS Safety Report 10801878 (Version 1)
Quarter: 2015Q1

REPORT INFORMATION
  Report Type: Spontaneous
  Country: US (occurrence: US)
  Receive Date: 20150217
  Receipt Date: 20150217
  Transmission Date: 20150721
  Serious: Yes (Death, Hospitalization)
  Sender: FDA-Public Use
  Company Number: US-BAYER-2015-023108

PATIENT
  Age: 49 Year
  Sex: Female

DRUGS (1)
  1. ULTRAVIST [Suspect]
     Active Substance: IOPROMIDE
     Indication: ARTERIOGRAM CORONARY
     Route: 042

REACTIONS (9)
  - Tracheal stenosis [Fatal]
  - Dyspnoea [Fatal]
  - Laryngeal oedema [Fatal]
  - Hypoxia [Fatal]
  - Anaphylactic reaction [Fatal]
  - Scleral hyperaemia [Fatal]
  - Tryptase increased [Fatal]
  - Pulseless electrical activity [Fatal]
  - Laryngospasm [Fatal]
